FAERS Safety Report 11513627 (Version 1)
Quarter: 2015Q3

REPORT INFORMATION
  Report Type: Spontaneous
  Country: US (occurrence: US)
  Receive Date: 20150903
  Receipt Date: 20150903
  Transmission Date: 20151125
  Serious: No
  Sender: FDA-Public Use
  Company Number: US-ELI_LILLY_AND_COMPANY-US201210009124

PATIENT
  Age: 63 Year
  Sex: Male

DRUGS (5)
  1. XANAX [Concomitant]
     Active Substance: ALPRAZOLAM
     Dosage: 0.5 MG, UNKNOWN
  2. CELEXA [Concomitant]
     Active Substance: CITALOPRAM HYDROBROMIDE
  3. TOPROL XL [Concomitant]
     Active Substance: METOPROLOL SUCCINATE
     Dosage: 75 MG, QD
  4. CYMBALTA [Suspect]
     Active Substance: DULOXETINE HYDROCHLORIDE
     Dosage: 30 MG, QD
     Dates: start: 20121026
  5. CYMBALTA [Suspect]
     Active Substance: DULOXETINE HYDROCHLORIDE
     Indication: ANXIETY
     Dosage: 60 MG, QOD
     Dates: start: 20121023

REACTIONS (15)
  - Feeling abnormal [Unknown]
  - Presyncope [Unknown]
  - Pain [Unknown]
  - Balance disorder [Unknown]
  - Off label use [Unknown]
  - Musculoskeletal pain [Unknown]
  - Fatigue [Unknown]
  - Confusional state [Unknown]
  - Blood pressure increased [Unknown]
  - Anxiety [Unknown]
  - Irritability [Unknown]
  - Pain in extremity [Unknown]
  - Dizziness [Unknown]
  - Mood altered [Unknown]
  - Muscular weakness [Unknown]
